FAERS Safety Report 4870016-X (Version None)
Quarter: 2005Q4

REPORT INFORMATION
  Report Type: 
  Country: None (occurrence: None)
  Receive Date: 20051223
  Receipt Date: 20051212
  Transmission Date: 20060501
  Serious: Yes (Other)
  Sender: FDA-Public Use
  Company Number: HQWYE988113DEC05

PATIENT
  Age: 42 Year
  Sex: Male

DRUGS (4)
  1. EFFEXOR XR [Suspect]
     Dosage: 112.5 MG 1X PER 1 DAY, ORAL
     Route: 048
     Dates: start: 20050801
  2. ATIVAN [Concomitant]
  3. NEXIUM [Concomitant]
  4. FLONASE [Concomitant]

REACTIONS (9)
  - ANHEDONIA [None]
  - ASTHENIA [None]
  - CONDITION AGGRAVATED [None]
  - DECREASED INTEREST [None]
  - DISTURBANCE IN ATTENTION [None]
  - DIZZINESS [None]
  - DRY MOUTH [None]
  - SOCIAL AVOIDANT BEHAVIOUR [None]
  - SUICIDAL IDEATION [None]
